FAERS Safety Report 4766429-7 (Version None)
Quarter: 2005Q3

REPORT INFORMATION
  Report Type: 
  Country: None (occurrence: None)
  Receive Date: 20050912
  Receipt Date: 20050831
  Transmission Date: 20060218
  Serious: Yes (Other)
  Sender: FDA-Public Use
  Company Number: US-ROCHE-416305

PATIENT
  Age: 29 Year
  Sex: Male

DRUGS (4)
  1. PEGASYS [Suspect]
     Indication: DRUG USE FOR UNKNOWN INDICATION
     Route: 058
     Dates: start: 20050703
  2. PEGASYS [Suspect]
     Route: 058
     Dates: start: 20050828
  3. COPEGUS [Suspect]
     Indication: DRUG USE FOR UNKNOWN INDICATION
     Route: 048
     Dates: start: 20050703
  4. COPEGUS [Suspect]
     Route: 048
     Dates: start: 20050828

REACTIONS (2)
  - APPENDICITIS [None]
  - INFLUENZA LIKE ILLNESS [None]
